FAERS Safety Report 4942854-6 (Version None)
Quarter: 2006Q1

REPORT INFORMATION
  Report Type: 
  Country: None (occurrence: None)
  Receive Date: 20060309
  Receipt Date: 20060224
  Transmission Date: 20060701
  Serious: Yes (Death, Other)
  Sender: FDA-Public Use
  Company Number: 2005139504

PATIENT
  Age: 51 Year
  Sex: Female

DRUGS (2)
  1. LYRICA [Suspect]
     Indication: NEURALGIA
     Dosage: 225 MG (75MG IN DAY 150MG IN NIGHT),
  2. AVANZA (MIRTAZAPINE) [Concomitant]

REACTIONS (1)
  - ANEURYSM [None]
